FAERS Safety Report 4999921-0 (Version None)
Quarter: 2006Q2

REPORT INFORMATION
  Report Type: 
  Country: None (occurrence: None)
  Receive Date: 20060509
  Receipt Date: 20060426
  Transmission Date: 20061013
  Serious: Yes (Hospitalization)
  Sender: FDA-Public Use
  Company Number: DE200604004349

PATIENT
  Age: 15 Year
  Sex: Male

DRUGS (1)
  1. STRATTERA [Suspect]
     Indication: ATTENTION DEFICIT/HYPERACTIVITY DISORDER
     Dosage: 60 MG DAILY(1/D) ORAL
     Route: 048
     Dates: start: 20060113

REACTIONS (11)
  - ANXIETY [None]
  - BLOOD PRESSURE DECREASED [None]
  - CIRCULATORY COLLAPSE [None]
  - DIARRHOEA [None]
  - DIZZINESS POSTURAL [None]
  - EXCITABILITY [None]
  - FEBRILE INFECTION [None]
  - PALPITATIONS [None]
  - RESPIRATORY TRACT INFECTION [None]
  - SUPRAVENTRICULAR TACHYCARDIA [None]
  - THYROIDITIS [None]
